FAERS Safety Report 9306875 (Version 2)
Quarter: 2013Q2

REPORT INFORMATION
  Report Type: Spontaneous
  Country: TR (occurrence: None)
  Receive Date: 20130319
  Receipt Date: 20130506
  Transmission Date: 20140414
  Serious: Yes (Life-Threatening, Hospitalization, Other)
  Sender: FDA-Public Use
  Company Number: ADR-2009-6218

PATIENT
  Age: 33 Year
  Sex: Male

DRUGS (1)
  1. LIORESAL [Suspect]
     Indication: MUSCLE SPASTICITY
     Dosage: DILUTED WITH 40 ML

REACTIONS (11)
  - Hypotonia [None]
  - Hypertension [None]
  - Bradycardia [None]
  - Respiratory disorder [None]
  - Grand mal convulsion [None]
  - Unresponsive to stimuli [None]
  - Pupillary light reflex tests normal [None]
  - Mydriasis [None]
  - Respiratory rate decreased [None]
  - Device malfunction [None]
  - Blood pressure decreased [None]
